FAERS Safety Report 7880916-4 (Version None)
Quarter: 2011Q4

REPORT INFORMATION
  Report Type: 
  Country: None (occurrence: None)
  Receive Date: 20111101
  Receipt Date: 20111017
  Transmission Date: 20120403
  Serious: Yes (Other)
  Sender: FDA-Public Use
  Company Number: US-JUTA GMBH-2011-18003

PATIENT
  Sex: Female

DRUGS (1)
  1. TAMOXIFEN CITRATE [Suspect]
     Indication: BREAST CANCER
     Dosage: UNK

REACTIONS (6)
  - GRAFT LOSS [None]
  - VENOUS INSUFFICIENCY [None]
  - GRAFT THROMBOSIS [None]
  - PULMONARY EMBOLISM [None]
  - SKIN FLAP NECROSIS [None]
  - FAT NECROSIS [None]
